FAERS Safety Report 21006825 (Version 1)
Quarter: 2022Q2

REPORT INFORMATION
  Report Type: Spontaneous
  Country: US (occurrence: US)
  Receive Date: 20220625
  Receipt Date: 20220625
  Transmission Date: 20220721
  Serious: No
  Sender: FDA-Public Use
  Company Number: US-BRISTOL-MYERS SQUIBB COMPANY-2022-057776

PATIENT
  Age: 44 Year
  Sex: Male

DRUGS (1)
  1. POMALYST [Suspect]
     Active Substance: POMALIDOMIDE
     Indication: Agranulocytosis
     Dosage: FREQ: TAKE 1 CAPSULE BY MOUTH ONCE EVERY MORNING FOR 21 DAYS, THEN 7 DAYS OFF
     Route: 048

REACTIONS (1)
  - Intentional product use issue [Unknown]
